FAERS Safety Report 22152112 (Version 1)
Quarter: 2023Q1

REPORT INFORMATION
  Report Type: Spontaneous
  Country: US (occurrence: US)
  Receive Date: 20230329
  Receipt Date: 20230329
  Transmission Date: 20230417
  Serious: No
  Sender: FDA-Public Use
  Company Number: US-TEVA-2023-US-2867515

PATIENT
  Age: 64 Year
  Sex: Female

DRUGS (1)
  1. NALOXONE\PENTAZOCINE [Suspect]
     Active Substance: NALOXONE\PENTAZOCINE
     Indication: Pain
     Dosage: 50 MG / 0.5 MG
     Route: 065

REACTIONS (1)
  - Drug ineffective [Unknown]

NARRATIVE: CASE EVENT DATE: 20230222
